FAERS Safety Report 9540657 (Version 3)
Quarter: 2013Q4

REPORT INFORMATION
  Report Type: Spontaneous
  Country: JP (occurrence: None)
  Receive Date: 20130917
  Receipt Date: 20131211
  Transmission Date: 20140711
  Serious: Yes (Hospitalization, Other)
  Sender: FDA-Public Use
  Company Number: ADR-2013-01620

PATIENT
  Age: 42 Year
  Sex: Male
  Weight: 53 kg

DRUGS (1)
  1. GABALON [Suspect]

REACTIONS (5)
  - Fall [None]
  - Head injury [None]
  - Haemorrhage intracranial [None]
  - Subdural haematoma [None]
  - Contusion [None]
